FAERS Safety Report 7369637-4 (Version None)
Quarter: 2011Q1

REPORT INFORMATION
  Report Type: 
  Country: None (occurrence: None)
  Receive Date: 20110315
  Receipt Date: 20110301
  Transmission Date: 20110831
  Serious: Yes (Death, Hospitalization)
  Sender: FDA-Public Use
  Company Number: WAES 1103USA00468

PATIENT
  Age: 32 Year
  Sex: Male

DRUGS (8)
  1. ACETAMINOPHEN [Concomitant]
  2. SULAMETHOXAZOLE/TRIMETHOPRIM [Concomitant]
  3. TAB RALTEGRAVIR POTASSIUM [Suspect]
     Indication: HIV INFECTION
     Dates: start: 20110111, end: 20110210
  4. ALUVIA (LOPINAVIR (+) RITONAVIR) [Suspect]
     Indication: HIV INFECTION
     Dates: start: 20110111, end: 20110210
  5. CIPROFLOXACIN [Concomitant]
  6. SODIUM CHLORIDE [Concomitant]
  7. DEXTROSE (+) ELECTROLYTES (UNSPECIFIED) [Concomitant]
  8. IBUPROFEN [Concomitant]

REACTIONS (11)
  - DEHYDRATION [None]
  - HEPATITIS [None]
  - ABSCESS [None]
  - PANCYTOPENIA [None]
  - CHOLECYSTITIS [None]
  - ASCITES [None]
  - STOMATITIS [None]
  - ULCER [None]
  - SEPSIS [None]
  - PERITONITIS [None]
  - BRONCHOPNEUMONIA [None]
